FAERS Safety Report 15896341 (Version 31)
Quarter: 2021Q3

REPORT INFORMATION
  Report Type: Report from Study
  Country: CA (occurrence: CA)
  Receive Date: 20190131
  Receipt Date: 20210928
  Transmission Date: 20211014
  Serious: Yes (Life-Threatening, Hospitalization, Other)
  Sender: FDA-Public Use
  Company Number: PHHY2014CA129860

PATIENT
  Age: 58 Year
  Sex: Female

DRUGS (36)
  1. XOLAIR [Suspect]
     Active Substance: OMALIZUMAB
     Dosage: 300 MG, EVERY 4 WEEKS
     Route: 058
     Dates: start: 20181228
  2. XOLAIR [Suspect]
     Active Substance: OMALIZUMAB
     Indication: CHRONIC SPONTANEOUS URTICARIA
     Dosage: 300 MG EVERY 4 WEEKS
     Route: 058
     Dates: start: 20140929, end: 20160704
  3. XOLAIR [Suspect]
     Active Substance: OMALIZUMAB
     Dosage: UNK
     Route: 058
     Dates: start: 20160215
  4. XOLAIR [Suspect]
     Active Substance: OMALIZUMAB
     Dosage: UNK
     Route: 058
     Dates: start: 20160411
  5. XOLAIR [Suspect]
     Active Substance: OMALIZUMAB
     Dosage: UNK
     Route: 058
     Dates: start: 20171102
  6. XOLAIR [Suspect]
     Active Substance: OMALIZUMAB
     Dosage: 300 MG, EVERY 4 WEEKS
     Route: 058
     Dates: start: 20191224
  7. CICLOSPORIN [Concomitant]
     Active Substance: CYCLOSPORINE
     Indication: PRODUCT USED FOR UNKNOWN INDICATION
     Dosage: UNK
     Route: 065
  8. XOLAIR [Suspect]
     Active Substance: OMALIZUMAB
     Indication: PSORIASIS
     Dosage: UNK
     Route: 058
     Dates: start: 20141124
  9. XOLAIR [Suspect]
     Active Substance: OMALIZUMAB
     Dosage: 300 MG, EVERY 4 WEEKS
     Route: 058
     Dates: start: 20150130
  10. XOLAIR [Suspect]
     Active Substance: OMALIZUMAB
     Dosage: 300 MG, EVERY 4 WEEKS
     Route: 058
     Dates: start: 20170516
  11. XOLAIR [Suspect]
     Active Substance: OMALIZUMAB
     Dosage: 300 MG, EVERY 4 WEEKS
     Route: 058
     Dates: start: 20171228
  12. XOLAIR [Suspect]
     Active Substance: OMALIZUMAB
     Dosage: 300 MG, EVERY 4 WEEKS
     Route: 058
  13. NEORAL [Suspect]
     Active Substance: CYCLOSPORINE
     Dosage: 1 DF, QD
     Route: 065
     Dates: start: 201801
  14. JANUMET [Concomitant]
     Active Substance: METFORMIN HYDROCHLORIDE\SITAGLIPTIN PHOSPHATE
     Indication: PRODUCT USED FOR UNKNOWN INDICATION
     Dosage: 100?1000 MG, QD
     Route: 065
  15. XOLAIR [Suspect]
     Active Substance: OMALIZUMAB
     Dosage: UNK
     Route: 058
     Dates: start: 20150316
  16. XOLAIR [Suspect]
     Active Substance: OMALIZUMAB
     Dosage: UNK
     Route: 058
     Dates: start: 20171130
  17. XOLAIR [Suspect]
     Active Substance: OMALIZUMAB
     Dosage: UNK
     Route: 065
     Dates: start: 20210511
  18. XOLAIR [Suspect]
     Active Substance: OMALIZUMAB
     Dosage: 300MG, EVERY 4 WEEKS
     Route: 058
     Dates: start: 20190613
  19. XOLAIR [Suspect]
     Active Substance: OMALIZUMAB
     Dosage: UNK
     Route: 058
     Dates: start: 20160314
  20. XOLAIR [Suspect]
     Active Substance: OMALIZUMAB
     Dosage: 300 MG, EVERY 4 WEEKS
     Route: 058
     Dates: start: 20190321
  21. XOLAIR [Suspect]
     Active Substance: OMALIZUMAB
     Dosage: 300 MG, EVERY 4 WEEKS
     Route: 058
     Dates: start: 20170517
  22. XOLAIR [Suspect]
     Active Substance: OMALIZUMAB
     Dosage: 300 MG, EVERY 4 WEEKS
     Route: 058
  23. XOLAIR [Suspect]
     Active Substance: OMALIZUMAB
     Dosage: UNK
     Route: 058
     Dates: start: 20210820
  24. XOLAIR [Suspect]
     Active Substance: OMALIZUMAB
     Dosage: 300 MG, EVERY 4 WEEKS
     Route: 058
     Dates: start: 20160704, end: 20160704
  25. XOLAIR [Suspect]
     Active Substance: OMALIZUMAB
     Dosage: UNK
     Route: 058
     Dates: start: 20180125, end: 20201103
  26. XOLAIR [Suspect]
     Active Substance: OMALIZUMAB
     Dosage: 300 MG, EVERY 4 WEEKS
     Route: 058
     Dates: start: 20180614
  27. XOLAIR [Suspect]
     Active Substance: OMALIZUMAB
     Dosage: 300 MG, EVERY 4 WEEKS
     Route: 058
     Dates: start: 20181004
  28. XOLAIR [Suspect]
     Active Substance: OMALIZUMAB
     Dosage: UNK
     Route: 065
     Dates: start: 2021
  29. XOLAIR [Suspect]
     Active Substance: OMALIZUMAB
     Dosage: UNK
     Route: 065
     Dates: start: 20210608
  30. NEORAL [Suspect]
     Active Substance: CYCLOSPORINE
     Indication: IMMUNODEFICIENCY
     Dosage: UNK
     Route: 065
  31. XOLAIR [Suspect]
     Active Substance: OMALIZUMAB
     Dosage: UNK
     Route: 058
     Dates: start: 20160509
  32. XOLAIR [Suspect]
     Active Substance: OMALIZUMAB
     Indication: CHRONIC SPONTANEOUS URTICARIA
     Dosage: 300 MG, EVERY 4 WEEKS
     Route: 058
     Dates: start: 20140929, end: 20160704
  33. XOLAIR [Suspect]
     Active Substance: OMALIZUMAB
     Dosage: 300 MG, EVERY 4 WEEKS
     Route: 058
     Dates: start: 20180517
  34. XOLAIR [Suspect]
     Active Substance: OMALIZUMAB
     Dosage: 300 MG, EVERY 4 WEEKS
     Route: 058
     Dates: start: 20200319
  35. PRO?METFORMIN [Concomitant]
     Active Substance: METFORMIN HYDROCHLORIDE
     Indication: PRODUCT USED FOR UNKNOWN INDICATION
     Dosage: UNK
     Route: 065
  36. JANUVIA [Concomitant]
     Active Substance: SITAGLIPTIN PHOSPHATE
     Indication: PRODUCT USED FOR UNKNOWN INDICATION
     Dosage: 2000 MG, QD
     Route: 065

REACTIONS (54)
  - Neoplasm malignant [Unknown]
  - Heart rate increased [Not Recovered/Not Resolved]
  - Sputum discoloured [Recovering/Resolving]
  - Productive cough [Recovering/Resolving]
  - Crying [Unknown]
  - Emotional distress [Unknown]
  - Back pain [Unknown]
  - Fear [Unknown]
  - Blood pressure increased [Not Recovered/Not Resolved]
  - Electrolyte imbalance [Unknown]
  - Blood creatinine increased [Recovered/Resolved]
  - Loss of consciousness [Unknown]
  - Anaphylactic shock [Unknown]
  - Ingrowing nail [Unknown]
  - Exposure to household chemicals [Unknown]
  - Ocular hyperaemia [Unknown]
  - Arthralgia [Unknown]
  - Pruritus [Unknown]
  - Memory impairment [Unknown]
  - Mental impairment [Unknown]
  - Infection susceptibility increased [Unknown]
  - Leukaemia [Unknown]
  - Influenza [Unknown]
  - Immune system disorder [Unknown]
  - Wound [Unknown]
  - Weight decreased [Unknown]
  - Platelet count increased [Unknown]
  - Asthenia [Unknown]
  - Skin plaque [Unknown]
  - Skin burning sensation [Unknown]
  - Erythema [Unknown]
  - Liver disorder [Recovered/Resolved]
  - Faeces discoloured [Recovered/Resolved]
  - Insomnia [Unknown]
  - Stress [Unknown]
  - Diverticulum [Unknown]
  - Pain in extremity [Unknown]
  - Myeloproliferative neoplasm [Unknown]
  - Urticaria [Unknown]
  - Pain [Unknown]
  - Anxiety [Unknown]
  - Pain of skin [Unknown]
  - Thermal burns of eye [Unknown]
  - Skin lesion [Unknown]
  - Abdominal pain [Recovered/Resolved]
  - Malaise [Unknown]
  - Blood magnesium decreased [Unknown]
  - Irritable bowel syndrome [Unknown]
  - Injection site pain [Unknown]
  - Myalgia [Unknown]
  - Weight increased [Unknown]
  - Decreased appetite [Recovered/Resolved]
  - Fatigue [Unknown]
  - Diarrhoea [Unknown]

NARRATIVE: CASE EVENT DATE: 20140929
